FAERS Safety Report 7488468-8 (Version None)
Quarter: 2011Q2

REPORT INFORMATION
  Report Type: 
  Country: None (occurrence: None)
  Receive Date: 20110518
  Receipt Date: 20110506
  Transmission Date: 20111010
  Serious: Yes (Other)
  Sender: FDA-Public Use
  Company Number: CA-CELGENEUS-028-21880-11050815

PATIENT
  Sex: Male

DRUGS (7)
  1. REVLIMID [Suspect]
     Dosage: 15 MILLIGRAM
     Route: 048
  2. RANITIDINE [Concomitant]
     Indication: ANTACID THERAPY
     Dosage: 150 MILLIGRAM
     Route: 065
  3. DEXAMETHASONE [Suspect]
     Indication: MULTIPLE MYELOMA
     Dosage: 40 MILLIGRAM
     Route: 065
  4. ASPIRIN [Concomitant]
     Indication: ANTIPLATELET THERAPY
     Dosage: 81 MILLIGRAM
     Route: 048
  5. METOPROLOL TARTRATE [Concomitant]
     Indication: BLOOD PRESSURE
     Dosage: 50 MILLIGRAM
     Route: 065
  6. TEMAZ [Concomitant]
     Indication: SLEEP DISORDER
     Dosage: 30 MILLIGRAM
     Route: 065
  7. REVLIMID [Suspect]
     Indication: MULTIPLE MYELOMA
     Route: 048

REACTIONS (2)
  - FLUID RETENTION [None]
  - WHITE BLOOD CELL COUNT DECREASED [None]
